FAERS Safety Report 7423011-0 (Version None)
Quarter: 2011Q2

REPORT INFORMATION
  Report Type: 
  Country: None (occurrence: None)
  Receive Date: 20110414
  Receipt Date: 20110414
  Transmission Date: 20111010
  Serious: Yes (Other)
  Sender: FDA-Public Use
  Company Number: None

PATIENT
  Sex: Female
  Weight: 55 kg

DRUGS (1)
  1. MEDROXYPROGESTERONE ACETATE INJ [Suspect]
     Indication: CONTRACEPTION
     Dosage: 150 MG Q 3 MONTH IM
     Route: 030
     Dates: start: 20100408, end: 20110303

REACTIONS (5)
  - ABDOMINAL DISCOMFORT [None]
  - PREGNANCY TEST URINE POSITIVE [None]
  - NAUSEA [None]
  - DIZZINESS [None]
  - METRORRHAGIA [None]
